FAERS Safety Report 5900326-6 (Version None)
Quarter: 2008Q3

REPORT INFORMATION
  Report Type: 
  Country: None (occurrence: None)
  Receive Date: 20080926
  Receipt Date: 20080915
  Transmission Date: 20090109
  Serious: Yes (Other)
  Sender: FDA-Public Use
  Company Number: DE-ROCHE-586482

PATIENT
  Sex: Female
  Weight: 58 kg

DRUGS (4)
  1. PEGASYS [Suspect]
     Route: 058
     Dates: start: 20080502, end: 20080729
  2. PEGASYS [Suspect]
     Route: 058
     Dates: start: 20080829
  3. RIBAVIRIN [Suspect]
     Route: 048
     Dates: start: 20080502, end: 20080729
  4. RIBAVIRIN [Suspect]
     Route: 048
     Dates: start: 20080825

REACTIONS (1)
  - CONVULSION [None]
